FAERS Safety Report 13964124 (Version 1)
Quarter: 2017Q3

REPORT INFORMATION
  Report Type: Report from Study
  Country: None (occurrence: US)
  Receive Date: 20170913
  Receipt Date: 20170913
  Transmission Date: 20171128
  Serious: Yes (Other)
  Sender: FDA-Public Use
  Company Number: US-ABBVIE-17K-163-2096336-00

PATIENT
  Sex: Male

DRUGS (1)
  1. HUMIRA [Suspect]
     Active Substance: ADALIMUMAB
     Indication: ANKYLOSING SPONDYLITIS
     Route: 058

REACTIONS (5)
  - Abdominal pain upper [Unknown]
  - Cyst [Unknown]
  - Chronic kidney disease [Unknown]
  - Rectal fissure [Unknown]
  - Dehydration [Unknown]

NARRATIVE: CASE EVENT DATE: 2014
